FAERS Safety Report 5164589-X (Version None)
Quarter: 2006Q4

REPORT INFORMATION
  Report Type: 
  Country: None (occurrence: None)
  Receive Date: 20061205
  Receipt Date: 20060808
  Transmission Date: 20070319
  Serious: Yes (Other)
  Sender: FDA-Public Use
  Company Number: JP-MERCK-0608USA02596

PATIENT
  Age: 30 Year
  Sex: Male

DRUGS (15)
  1. PEPCID [Suspect]
     Indication: GASTRITIS
     Route: 042
     Dates: start: 20060807, end: 20060807
  2. CYANOCOBALAMIN [Concomitant]
     Indication: ANOREXIA
     Route: 042
     Dates: start: 20060807, end: 20060807
  3. THIAMINE DISULFIDE PHOSPHATE [Concomitant]
     Indication: ANOREXIA
     Route: 042
     Dates: start: 20060807, end: 20060807
  4. PYRIDOXINE HYDROCHLORIDE [Concomitant]
     Indication: ANOREXIA
     Route: 042
     Dates: start: 20060807, end: 20060807
  5. VITAMEDIN [Concomitant]
     Indication: ANOREXIA
     Route: 042
     Dates: start: 20060807, end: 20060807
  6. SOLULACT [Concomitant]
     Indication: DEHYDRATION
     Route: 065
     Dates: start: 20060807, end: 20060807
  7. SOLULACT [Concomitant]
     Route: 065
     Dates: start: 20060803, end: 20060804
  8. SOLULACT [Concomitant]
     Indication: ANOREXIA
     Route: 065
     Dates: start: 20060807, end: 20060807
  9. SOLULACT [Concomitant]
     Route: 065
     Dates: start: 20060803, end: 20060804
  10. PANSPORIN [Concomitant]
     Indication: PHARYNGITIS
     Route: 041
     Dates: start: 20060803, end: 20060804
  11. METILON [Concomitant]
     Indication: PYREXIA
     Route: 030
     Dates: start: 20060803, end: 20060804
  12. CALONAL [Concomitant]
     Indication: PYREXIA
     Route: 048
     Dates: start: 20060804, end: 20060808
  13. LAC-B [Concomitant]
     Indication: DIARRHOEA
     Route: 048
     Dates: start: 20060804, end: 20060808
  14. LEVOFLOXACIN [Concomitant]
     Indication: PHARYNGITIS
     Route: 048
     Dates: start: 20060804, end: 20060808
  15. LEVOFLOXACIN [Concomitant]
     Indication: DIARRHOEA
     Route: 048
     Dates: start: 20060804, end: 20060808

REACTIONS (1)
  - ANAPHYLACTOID REACTION [None]
